FAERS Safety Report 13556412 (Version 1)
Quarter: 2017Q2

REPORT INFORMATION
  Report Type: Spontaneous
  Country: US (occurrence: US)
  Receive Date: 20170517
  Receipt Date: 20170517
  Transmission Date: 20170830
  Serious: No
  Sender: FDA-Public Use
  Company Number: US-SA-2017SA038392

PATIENT
  Sex: Male

DRUGS (3)
  1. TOUJEO [Suspect]
     Active Substance: INSULIN GLARGINE
     Indication: DIABETES MELLITUS
     Dosage: DOSE:55 UNIT(S)
     Route: 065
  2. SOLOSTAR [Concomitant]
     Active Substance: DEVICE
     Indication: DIABETES MELLITUS
  3. LANTUS [Concomitant]
     Active Substance: INSULIN GLARGINE
     Dosage: 3-4 YEARS

REACTIONS (7)
  - Injection site pain [Unknown]
  - Skin hypertrophy [Unknown]
  - Blood glucose abnormal [Unknown]
  - Dizziness [Unknown]
  - Glycosylated haemoglobin increased [Unknown]
  - Lethargy [Unknown]
  - Weight decreased [Unknown]
